FAERS Safety Report 9652521 (Version 1)
Quarter: 2013Q4

REPORT INFORMATION
  Report Type: Spontaneous
  Country: FR (occurrence: FR)
  Receive Date: 20131029
  Receipt Date: 20131029
  Transmission Date: 20140711
  Serious: Yes (Other)
  Sender: FDA-Public Use
  Company Number: FR-TEVA-439487ISR

PATIENT
  Age: 57 Year
  Sex: Female

DRUGS (3)
  1. TRIMEBUTINE [Suspect]
  2. IBUPROFEN [Suspect]
  3. INIPOMP [Suspect]

REACTIONS (1)
  - Coma [Unknown]
